FAERS Safety Report 5711264-6 (Version None)
Quarter: 2008Q2

REPORT INFORMATION
  Report Type: 
  Country: None (occurrence: None)
  Receive Date: 20080415
  Receipt Date: 20080401
  Transmission Date: 20081010
  Serious: Yes (Other)
  Sender: FDA-Public Use
  Company Number: 2008000763

PATIENT
  Age: 67 Year
  Sex: Female

DRUGS (2)
  1. TARCEVA [Suspect]
     Indication: LUNG NEOPLASM MALIGNANT
     Dosage: (150 MG, QD), ORAL; (100 MG, QD), ORAL
     Route: 048
     Dates: start: 20071116
  2. TARCEVA [Suspect]
     Indication: LUNG NEOPLASM MALIGNANT
     Dosage: (150 MG, QD), ORAL; (100 MG, QD), ORAL
     Route: 048
     Dates: start: 20071213

REACTIONS (3)
  - ESCHAR [None]
  - RASH MACULAR [None]
  - RASH PAPULAR [None]
